FAERS Safety Report 7573054-1 (Version None)
Quarter: 2011Q2

REPORT INFORMATION
  Report Type: 
  Country: None (occurrence: None)
  Receive Date: 20110627
  Receipt Date: 20110621
  Transmission Date: 20111010
  Serious: Yes (Death, Hospitalization)
  Sender: FDA-Public Use
  Company Number: US-ASTELLAS-2011US002633

PATIENT
  Sex: Male

DRUGS (3)
  1. ERLOTINIB HYDROCHLORIDE [Suspect]
     Indication: PANCREATIC CARCINOMA
     Dosage: 100 MG, UID/QD
     Route: 048
     Dates: start: 20110203
  2. GEMZAR [Suspect]
     Indication: PANCREATIC CARCINOMA METASTATIC
     Dosage: UNK
     Route: 065
  3. ANTIBIOTICS [Concomitant]
     Indication: PRODUCT USED FOR UNKNOWN INDICATION
     Dosage: UNK
     Route: 065

REACTIONS (16)
  - DEHYDRATION [None]
  - THROMBOCYTOPENIA [None]
  - DIZZINESS [None]
  - HOSPITALISATION [None]
  - HYPOPHAGIA [None]
  - DECREASED APPETITE [None]
  - HYPOKALAEMIA [None]
  - PANCYTOPENIA [None]
  - NEUTROPENIA [None]
  - OPEN WOUND [None]
  - LEUKOPENIA [None]
  - OEDEMA [None]
  - PRESYNCOPE [None]
  - LIVER FUNCTION TEST ABNORMAL [None]
  - RASH MACULO-PAPULAR [None]
  - PANCREATIC CARCINOMA METASTATIC [None]
